FAERS Safety Report 8990642 (Version 2)
Quarter: 2013Q1

REPORT INFORMATION
  Report Type: Spontaneous
  Country: US (occurrence: US)
  Receive Date: 20121228
  Receipt Date: 20130109
  Transmission Date: 20140127
  Serious: Yes (Hospitalization, Other)
  Sender: FDA-Public Use
  Company Number: US-JNJFOC-20121211738

PATIENT
  Sex: Male

DRUGS (2)
  1. ZYRTEC IR [Suspect]
     Route: 065
  2. ZYRTEC IR [Suspect]
     Indication: MULTIPLE ALLERGIES
     Dosage: 10 MG
     Route: 065

REACTIONS (4)
  - Dependence [Unknown]
  - Burning sensation [Unknown]
  - Pruritus [Unknown]
  - Rash generalised [Unknown]
